FAERS Safety Report 11012512 (Version 1)
Quarter: 2015Q2

REPORT INFORMATION
  Report Type: Spontaneous
  Country: None (occurrence: None)
  Receive Date: 20150410
  Receipt Date: 20150410
  Transmission Date: 20150821
  Serious: No
  Sender: FDA-Public Use
  Company Number: None

PATIENT
  Age: 61 Year
  Sex: Female
  Weight: 60.33 kg

DRUGS (1)
  1. CELECOXIB. [Suspect]
     Active Substance: CELECOXIB
     Indication: OSTEOARTHRITIS
     Dosage: 200MG ONE CAPSULE  ONCE DAILY  TAKEN BY MOUTH
     Route: 048

REACTIONS (4)
  - Product substitution issue [None]
  - Drug effect decreased [None]
  - Product quality issue [None]
  - Abdominal discomfort [None]
